FAERS Safety Report 8260170-4 (Version None)
Quarter: 2012Q2

REPORT INFORMATION
  Report Type: 
  Country: None (occurrence: None)
  Receive Date: 20120404
  Receipt Date: 20120327
  Transmission Date: 20120825
  Serious: Yes (Hospitalization)
  Sender: FDA-Public Use
  Company Number: US-JNJFOC-20120314507

PATIENT
  Sex: Female

DRUGS (3)
  1. INVEGA SUSTENNA [Suspect]
     Indication: BIPOLAR DISORDER
     Route: 030
     Dates: start: 20110101
  2. ZYPREXA [Concomitant]
     Route: 048
  3. TRILEPTAL [Concomitant]
     Indication: BIPOLAR DISORDER
     Route: 048

REACTIONS (1)
  - MANIA [None]
